FAERS Safety Report 9554642 (Version 2)
Quarter: 2014Q1

REPORT INFORMATION
  Report Type: Spontaneous
  Country: DE (occurrence: DE)
  Receive Date: 20130925
  Receipt Date: 20140128
  Transmission Date: 20141002
  Serious: Yes (Other)
  Sender: FDA-Public Use
  Company Number: DE-PFIZER INC-2013274907

PATIENT
  Sex: Male

DRUGS (2)
  1. SORTIS [Suspect]
     Dosage: 10 MG, 1X/DAY
     Dates: start: 2007
  2. EZETROL [Concomitant]
     Dosage: 5 MG, 1X/DAY
     Dates: start: 2007

REACTIONS (1)
  - Cardiac disorder [Unknown]
